FAERS Safety Report 8354171-5 (Version None)
Quarter: 2012Q2

REPORT INFORMATION
  Report Type: 
  Country: None (occurrence: None)
  Receive Date: 20120511
  Receipt Date: 20120509
  Transmission Date: 20120825
  Serious: Yes (Death, Hospitalization, Other)
  Sender: FDA-Public Use
  Company Number: PHHY2012CH039800

PATIENT
  Age: 88 Year
  Sex: Male

DRUGS (7)
  1. EXFORGE [Concomitant]
     Dosage: 10 MG, QD
     Route: 048
     Dates: start: 20120116, end: 20120118
  2. METOPROLOL TARTRATE AND HYDROCHLOROTHIAZIDE [Concomitant]
     Dosage: 20 MG, QD
     Route: 048
     Dates: start: 20120117, end: 20120208
  3. TORSEMIDE [Concomitant]
     Dosage: 5 MG, QD
     Route: 048
     Dates: start: 20120116, end: 20120117
  4. IMIPENEM AND CILASTATIN SODIUM [Suspect]
     Dosage: 500 MG, TID
     Route: 042
     Dates: start: 20120129, end: 20120207
  5. AMLODIPINE BESYLATE [Concomitant]
     Dosage: 10 MG, QD
     Route: 048
     Dates: start: 20120118, end: 20120206
  6. PROSCAR [Concomitant]
     Dosage: 5 MG, QD
     Route: 048
     Dates: start: 20120116, end: 20120207
  7. AMOXICILLIN AND CLAVULANATE POTASSIUM [Suspect]
     Indication: BRONCHOPNEUMONIA
     Dosage: 1.2 G, TID
     Route: 042
     Dates: start: 20120118, end: 20120124

REACTIONS (6)
  - DYSPNOEA [None]
  - DEATH [None]
  - ANAEMIA [None]
  - PYREXIA [None]
  - PANCYTOPENIA [None]
  - BRONCHOPNEUMONIA [None]
